FAERS Safety Report 10110685 (Version 1)
Quarter: 2014Q2

REPORT INFORMATION
  Report Type: Spontaneous
  Country: US (occurrence: None)
  Receive Date: 20140424
  Receipt Date: 20140424
  Transmission Date: 20141212
  Serious: No
  Sender: FDA-Public Use
  Company Number: None

PATIENT
  Age: 31 Year
  Sex: Female
  Weight: 57 kg

DRUGS (1)
  1. MINOCYCLIN [Suspect]
     Indication: ACNE
     Route: 048

REACTIONS (3)
  - Dizziness [None]
  - Vertigo [None]
  - Ototoxicity [None]
